FAERS Safety Report 18970341 (Version 2)
Quarter: 2021Q1

REPORT INFORMATION
  Report Type: Spontaneous
  Country: US (occurrence: US)
  Receive Date: 20210304
  Receipt Date: 20210316
  Transmission Date: 20210420
  Serious: Yes (Other)
  Sender: FDA-Public Use
  Company Number: US-PFIZER INC-2021223016

PATIENT
  Age: 74 Year
  Sex: Female
  Weight: 81.65 kg

DRUGS (1)
  1. SOMAVERT [Suspect]
     Active Substance: PEGVISOMANT
     Indication: ACROMEGALY
     Dosage: 10 MG, 1X/DAY
     Dates: start: 20151109

REACTIONS (3)
  - Intentional product misuse [Unknown]
  - Cataract [Unknown]
  - Hypoacusis [Unknown]
